FAERS Safety Report 12330642 (Version 1)
Quarter: 2016Q2

REPORT INFORMATION
  Report Type: Spontaneous
  Country: JP (occurrence: JP)
  Receive Date: 20160504
  Receipt Date: 20160504
  Transmission Date: 20160815
  Serious: Yes (Other)
  Sender: FDA-Public Use
  Company Number: JP-JNJFOC-20160426151

PATIENT
  Age: 69 Year
  Sex: Male

DRUGS (2)
  1. RIUP %5 PLUS LOTION [Suspect]
     Active Substance: MINOXIDIL
     Route: 061
  2. RIUP %5 PLUS LOTION [Suspect]
     Active Substance: MINOXIDIL
     Indication: ANDROGENETIC ALOPECIA
     Route: 061
     Dates: start: 201512, end: 201604

REACTIONS (1)
  - Myocardial infarction [Recovering/Resolving]
